FAERS Safety Report 7543539-2 (Version None)
Quarter: 2011Q2

REPORT INFORMATION
  Report Type: 
  Country: None (occurrence: None)
  Receive Date: 20110613
  Receipt Date: 20020628
  Transmission Date: 20111010
  Serious: Yes (Death, Other)
  Sender: FDA-Public Use
  Company Number: PHBS2000CL13145

PATIENT
  Sex: Female

DRUGS (1)
  1. VALSARTAN [Suspect]
     Dosage: 80 MG, DAILY
     Route: 048

REACTIONS (1)
  - MYOCARDIAL INFARCTION [None]
